FAERS Safety Report 4354230-8 (Version None)
Quarter: 2004Q2

REPORT INFORMATION
  Report Type: 
  Country: None (occurrence: None)
  Receive Date: 20040506
  Receipt Date: 20040423
  Transmission Date: 20050107
  Serious: Yes (Hospitalization)
  Sender: FDA-Public Use
  Company Number: 200401701

PATIENT
  Age: 76 Year
  Sex: Male

DRUGS (10)
  1. TAGAMET [Suspect]
     Dosage: 400MG PER DAY
     Route: 048
     Dates: start: 20031221, end: 20040317
  2. INTRON A [Suspect]
     Route: 058
     Dates: start: 20031222, end: 20040317
  3. FERROUS CITRATE [Concomitant]
     Dates: start: 20031218
  4. ALLOPURINOL [Concomitant]
     Dates: start: 20040212
  5. PURSENNID [Concomitant]
     Dates: start: 20031205
  6. CHINESE MEDICINE [Concomitant]
     Dates: start: 20031215
  7. BIFIDOBACTERIUM [Concomitant]
     Dates: start: 20031203
  8. UNIPHYL [Concomitant]
     Dates: start: 20030929
  9. FLUTICASONE PROPIONATE [Concomitant]
     Dates: start: 20030929
  10. MYSLEE [Concomitant]
     Dates: start: 20031028

REACTIONS (1)
  - APLASIA PURE RED CELL [None]
